FAERS Safety Report 25838649 (Version 1)
Quarter: 2025Q3

REPORT INFORMATION
  Report Type: Spontaneous
  Country: CH (occurrence: CH)
  Receive Date: 20250924
  Receipt Date: 20250924
  Transmission Date: 20251021
  Serious: Yes (Other)
  Sender: BRISTOL-MYERS SQUIBB COMPANY
  Company Number: None

PATIENT
  Age: 50 Year
  Sex: Female
  Weight: 52 kg

DRUGS (4)
  1. ELIQUIS [Suspect]
     Active Substance: APIXABAN
     Indication: Pulmonary embolism
     Dates: start: 20241009, end: 20241017
  2. ELIQUIS [Suspect]
     Active Substance: APIXABAN
     Dosage: SWITCH FOR XARELTO, AS ELIQUIS WAS NOT WELL TOLERATED
     Dates: start: 20241018, end: 20250408
  3. LEVOFLOXACIN [Suspect]
     Active Substance: LEVOFLOXACIN
     Indication: Pulmonary infarction
     Dates: start: 20241010, end: 20241015
  4. IOBITRIDOL [Suspect]
     Active Substance: IOBITRIDOL
     Indication: Computerised tomogram
     Dates: start: 20241009, end: 20241009

REACTIONS (1)
  - Periarthritis [Not Recovered/Not Resolved]

NARRATIVE: CASE EVENT DATE: 20241001
